FAERS Safety Report 9135281 (Version 1)
Quarter: 2013Q1

REPORT INFORMATION
  Report Type: Spontaneous
  Country: US (occurrence: US)
  Receive Date: 20130304
  Receipt Date: 20130304
  Transmission Date: 20140127
  Serious: No
  Sender: FDA-Public Use
  Company Number: US-ENDO PHARMACEUTICALS INC.-ENDC20110079

PATIENT
  Sex: Male

DRUGS (2)
  1. ENDOCET [Suspect]
     Indication: NECK PAIN
     Dosage: 120/3900 MG
     Route: 048
  2. ENDOCET [Suspect]
     Indication: BACK PAIN

REACTIONS (4)
  - Pyrexia [Recovered/Resolved]
  - Influenza like illness [Recovered/Resolved]
  - Rash [Recovered/Resolved]
  - Muscle spasms [Recovered/Resolved]
